FAERS Safety Report 21311165 (Version 1)
Quarter: 2022Q3

REPORT INFORMATION
  Report Type: Spontaneous
  Country: US (occurrence: None)
  Receive Date: 20220909
  Receipt Date: 20220909
  Transmission Date: 20221027
  Serious: No
  Sender: FDA-Public Use
  Company Number: US-ARIS GLOBAL-202202-0196

PATIENT
  Sex: Female

DRUGS (10)
  1. OXERVATE [Suspect]
     Active Substance: CENEGERMIN-BKBJ
     Indication: Neurotrophic keratopathy
     Route: 047
     Dates: start: 20220125
  2. VITAMINS [Concomitant]
     Active Substance: VITAMINS
  3. MAGNESIUM OXIDE [Concomitant]
     Active Substance: MAGNESIUM OXIDE
  4. CALCIUM 600 + VIT D [Concomitant]
  5. ASPIRIN [Concomitant]
     Active Substance: ASPIRIN
  6. SIMVASTATIN [Concomitant]
     Active Substance: SIMVASTATIN
  7. ROCKLATAN [Concomitant]
     Active Substance: LATANOPROST\NETARSUDIL MESYLATE
     Dosage: 0.02-0.005
  8. THERATEARS [Concomitant]
     Active Substance: CARBOXYMETHYLCELLULOSE SODIUM
  9. INVELTYS [Concomitant]
     Active Substance: LOTEPREDNOL ETABONATE
  10. SIMBRINZA [Concomitant]
     Active Substance: BRIMONIDINE TARTRATE\BRINZOLAMIDE
     Dosage: 1 %-0.2 %

REACTIONS (9)
  - Eye pain [Unknown]
  - Periorbital swelling [Recovering/Resolving]
  - Lacrimation increased [Recovering/Resolving]
  - Foreign body sensation in eyes [Recovering/Resolving]
  - Ocular discomfort [Unknown]
  - Photophobia [Unknown]
  - Eye irritation [Recovering/Resolving]
  - Eye pruritus [Recovering/Resolving]
  - Eyelid margin crusting [Recovering/Resolving]
